FAERS Safety Report 8194266-2 (Version None)
Quarter: 2012Q1

REPORT INFORMATION
  Report Type: 
  Country: None (occurrence: None)
  Receive Date: 20120308
  Receipt Date: 20120227
  Transmission Date: 20120608
  Serious: Yes (Other)
  Sender: FDA-Public Use
  Company Number: FR-JNJFOC-20120301815

PATIENT
  Sex: Male
  Weight: 101 kg

DRUGS (8)
  1. INDAPAMIDE [Concomitant]
  2. DESLORATADINE [Concomitant]
  3. ACETAMINOPHEN [Concomitant]
  4. ASPIRIN [Concomitant]
  5. NEXIUM [Concomitant]
  6. ATORVASTATIN [Concomitant]
  7. XARELTO [Suspect]
     Indication: HIP ARTHROPLASTY
     Route: 048
     Dates: end: 20120222
  8. AMLODIPINE BESYLATE [Concomitant]

REACTIONS (1)
  - PRURIGO [None]
